FAERS Safety Report 13932845 (Version 3)
Quarter: 2019Q4

REPORT INFORMATION
  Report Type: Spontaneous
  Country: TW (occurrence: TW)
  Receive Date: 20170904
  Receipt Date: 20191211
  Transmission Date: 20200122
  Serious: Yes (Life-Threatening, Hospitalization)
  Sender: FDA-Public Use
  Company Number: TW-BAUSCH-BL-2017-026098

PATIENT
  Age: 57 Year
  Sex: Female

DRUGS (8)
  1. MYCOPHENOLATE MOFETIL. [Suspect]
     Active Substance: MYCOPHENOLATE MOFETIL
     Indication: IMMUNOSUPPRESSION
     Route: 065
  2. SIROLIMUS. [Suspect]
     Active Substance: SIROLIMUS
     Indication: IMMUNOSUPPRESSION
     Route: 065
     Dates: start: 201212
  3. ADVAGRAF [Suspect]
     Active Substance: TACROLIMUS
     Dosage: ON DECREASED DOSE
     Route: 065
  4. CICLOSPORIN [Concomitant]
     Active Substance: CYCLOSPORINE
     Indication: IMMUNOSUPPRESSION
  5. TRIMETHOPRIM-SULFAMETHOXAZOLE [Concomitant]
     Active Substance: SULFAMETHOXAZOLE\TRIMETHOPRIM
     Indication: ANTIFUNGAL PROPHYLAXIS
  6. PREDNISOLONE. [Suspect]
     Active Substance: PREDNISOLONE
     Indication: IMMUNOSUPPRESSION
     Route: 065
  7. ADVAGRAF [Suspect]
     Active Substance: TACROLIMUS
     Route: 065
  8. ADVAGRAF [Suspect]
     Active Substance: TACROLIMUS
     Indication: TRANSPLANT REJECTION
     Route: 065
     Dates: start: 2012

REACTIONS (3)
  - Pneumocystis jirovecii pneumonia [Recovering/Resolving]
  - Pleural effusion [Recovering/Resolving]
  - Bronchiolitis [Recovering/Resolving]
